FAERS Safety Report 9447791 (Version 1)
Quarter: 2013Q3

REPORT INFORMATION
  Report Type: Spontaneous
  Country: US (occurrence: None)
  Receive Date: 20130807
  Receipt Date: 20130807
  Transmission Date: 20140515
  Serious: Yes (Hospitalization)
  Sender: FDA-Public Use
  Company Number: None

PATIENT
  Sex: Female
  Weight: 52.3 kg

DRUGS (1)
  1. CIMZIA [Suspect]
     Route: 058
     Dates: start: 20130623

REACTIONS (2)
  - Abscess [None]
  - Clostridial infection [None]
